FAERS Safety Report 8701956 (Version 3)
Quarter: 2013Q4

REPORT INFORMATION
  Report Type: Spontaneous
  Country: JP (occurrence: JP)
  Receive Date: 20120803
  Receipt Date: 20131106
  Transmission Date: 20140711
  Serious: Yes (Other)
  Sender: FDA-Public Use
  Company Number: JP-009507513-1207JPN012592

PATIENT
  Age: 91 Year
  Sex: Male

DRUGS (11)
  1. HALTHROW [Concomitant]
     Dosage: 0.2 MG FREQUENCY UNKNOWN
  2. URIEF [Concomitant]
     Dosage: 8 MG FREQUENCY UNKNOWN
     Route: 048
  3. NIKORANMART [Concomitant]
     Dosage: 15 MG FREQUENCY UNKNOWN
  4. APATYA [Concomitant]
     Dosage: 1 DF FREQUENCY UNKNOWN
     Route: 062
  5. EURAX [Concomitant]
     Dosage: UNK
     Route: 061
     Dates: start: 20120601
  6. STROMECTOL TABLETS 3 MG [Suspect]
     Dosage: 9 MG, ONCE
     Route: 048
     Dates: start: 20120601, end: 20120601
  7. STROMECTOL TABLETS 3 MG [Suspect]
     Dosage: 9 MG, ONCE
     Route: 048
     Dates: start: 20120611, end: 20120611
  8. BASSAMIN [Concomitant]
     Dosage: 81 MG, QD
     Route: 048
  9. LERITE [Concomitant]
     Dosage: 2.5 MG, QD
     Route: 048
  10. FUROSEMIDE [Concomitant]
     Dosage: 20 MG FREQUENCY UNKNOWN
     Route: 048
  11. ASPARA K [Concomitant]
     Dosage: 300 MG FREQUENCY UNKNOWN
     Route: 048

REACTIONS (1)
  - Eosinophilia [Recovered/Resolved]
